FAERS Safety Report 23965105 (Version 1)
Quarter: 2024Q2

REPORT INFORMATION
  Report Type: Other
  Country: JP (occurrence: None)
  Receive Date: 20240612
  Receipt Date: 20240612
  Transmission Date: 20240716
  Serious: Yes (Other)
  Sender: FDA-Public Use
  Company Number: JP-ROCHE-3579758

PATIENT

DRUGS (2)
  1. RITUXAN [Suspect]
     Active Substance: RITUXIMAB
     Indication: Haematological neoplasm
     Dosage: DAYS 1, 8, 15 AND 22 IN CYCLE 1 AND ON DAY 1 IN CYCLES 2-5 (TOTAL 8 DOSES), UP TO 12 CYCLES
     Route: 041
  2. LENALIDOMIDE [Suspect]
     Active Substance: LENALIDOMIDE
     Indication: Haematological neoplasm
     Dosage: DAYS 1-21
     Route: 065

REACTIONS (5)
  - White blood cell count decreased [Unknown]
  - Neutrophil count decreased [Unknown]
  - Platelet count decreased [Unknown]
  - Infusion related reaction [Unknown]
  - Rash [Unknown]
